FAERS Safety Report 12202041 (Version 1)
Quarter: 2016Q1

REPORT INFORMATION
  Report Type: Spontaneous
  Country: US (occurrence: US)
  Receive Date: 20160322
  Receipt Date: 20160322
  Transmission Date: 20160526
  Serious: No
  Sender: FDA-Public Use
  Company Number: ADR-2015-00925

PATIENT
  Age: 45 Year
  Sex: Female

DRUGS (4)
  1. COMPOUNDED BACLOFEN [Suspect]
     Active Substance: BACLOFEN
     Dosage: 800 MCG/DAY
     Route: 037
  2. BACLOFEN, UNKNOWN [Suspect]
     Active Substance: BACLOFEN
     Dosage: 20 MG TABLETS
     Route: 048
  3. HYDRMORPHONE [Suspect]
     Active Substance: HYDROMORPHONE
     Dosage: 0.8 MG/DAY
     Route: 037
  4. LIORESAL [Suspect]
     Active Substance: BACLOFEN
     Route: 037

REACTIONS (6)
  - Muscle tightness [Recovered/Resolved]
  - Medical device site pain [Recovered/Resolved]
  - Asthenia [Recovered/Resolved]
  - No therapeutic response [Recovered/Resolved]
  - Condition aggravated [Recovered/Resolved]
  - Dizziness [Recovered/Resolved]
